FAERS Safety Report 19191610 (Version 1)
Quarter: 2021Q2

REPORT INFORMATION
  Report Type: Report from Study
  Country: US (occurrence: US)
  Receive Date: 20210428
  Receipt Date: 20210428
  Transmission Date: 20210717
  Serious: Yes (Death, Hospitalization, Other)
  Sender: FDA-Public Use
  Company Number: US-ASTRAZENECA-2021A353420

PATIENT
  Age: 27161 Day
  Sex: Male
  Weight: 65.8 kg

DRUGS (3)
  1. ACYCLOVIR. [Concomitant]
     Active Substance: ACYCLOVIR
     Dates: start: 20201211
  2. CALQUENCE [Suspect]
     Active Substance: ACALABRUTINIB
     Indication: CHRONIC LYMPHOCYTIC LEUKAEMIA
     Route: 048
     Dates: start: 20201211
  3. PREDAXA [Concomitant]

REACTIONS (21)
  - Pyrexia [Unknown]
  - Gait inability [Unknown]
  - Asthenia [Unknown]
  - Pneumonia [Unknown]
  - Abdominal distension [Unknown]
  - Decreased activity [Unknown]
  - Decubitus ulcer [Unknown]
  - Fall [Unknown]
  - Cough [Unknown]
  - Pulmonary oedema [Unknown]
  - Fungal infection [Unknown]
  - Feeding disorder [Not Recovered/Not Resolved]
  - Haemoglobin abnormal [Unknown]
  - Abdominal discomfort [Unknown]
  - Dysuria [Unknown]
  - Death [Fatal]
  - Weight decreased [Not Recovered/Not Resolved]
  - Blood disorder [Unknown]
  - Coagulopathy [Unknown]
  - Lymphadenopathy [Unknown]
  - Thrombosis [Unknown]

NARRATIVE: CASE EVENT DATE: 20210416
